FAERS Safety Report 9351213 (Version 2)
Quarter: 2013Q2

REPORT INFORMATION
  Report Type: Spontaneous
  Country: IT (occurrence: IT)
  Receive Date: 20130617
  Receipt Date: 20130627
  Transmission Date: 20140414
  Serious: Yes (Hospitalization, Other)
  Sender: FDA-Public Use
  Company Number: IT-PFIZER INC-2013179033

PATIENT
  Age: 64 Year
  Sex: Female

DRUGS (6)
  1. SUTENT [Suspect]
     Indication: RENAL NEOPLASM
     Dosage: 37.5 MG, 1X/DAY
     Route: 048
     Dates: start: 20130525, end: 20130609
  2. LEVOSULPIRIDE [Concomitant]
  3. PANTOPRAZOLE [Concomitant]
  4. DEXAMETHASONE SODIUM PHOSPHATE [Concomitant]
     Dosage: 8 MG, UNK
  5. CIPRALEX [Concomitant]
  6. XANAX [Concomitant]
     Dosage: 0.5 MG, UNK

REACTIONS (2)
  - Pancytopenia [Recovering/Resolving]
  - Stomatitis [Recovering/Resolving]
